FAERS Safety Report 16171530 (Version 1)
Quarter: 2019Q2

REPORT INFORMATION
  Report Type: Spontaneous
  Country: FR (occurrence: FR)
  Receive Date: 20190408
  Receipt Date: 20190408
  Transmission Date: 20190711
  Serious: Yes (Life-Threatening, Hospitalization)
  Sender: FDA-Public Use
  Company Number: FR-PFIZER INC-2019147888

PATIENT
  Age: 8 Year
  Sex: Male

DRUGS (1)
  1. ADVIL [Suspect]
     Active Substance: IBUPROFEN
     Indication: EAR INFECTION
     Dosage: 3 DF, 1X/DAY
     Route: 048
     Dates: start: 20190214, end: 2019

REACTIONS (4)
  - Product use issue [Unknown]
  - Intentional product misuse [Unknown]
  - Infection [Not Recovered/Not Resolved]
  - Meningoencephalitis bacterial [Not Recovered/Not Resolved]

NARRATIVE: CASE EVENT DATE: 20190214
